FAERS Safety Report 4501339-1 (Version None)
Quarter: 2004Q3

REPORT INFORMATION
  Report Type: 
  Country: None (occurrence: None)
  Receive Date: 20040928
  Receipt Date: 20040812
  Transmission Date: 20050211
  Serious: No
  Sender: FDA-Public Use
  Company Number: 04P-163-0270479-00

PATIENT
  Age: 64 Year
  Sex: Female
  Weight: 56.6996 kg

DRUGS (7)
  1. HUMIRA [Suspect]
     Indication: RHEUMATOID ARTHRITIS
     Dosage: 40 MG, 1 IN 2 WK, SUBCUTANEOUS; 40 MG, 1 IN 1 WK, SUBCUTANEOUS
     Route: 058
     Dates: start: 20040501, end: 20040720
  2. HUMIRA [Suspect]
     Indication: RHEUMATOID ARTHRITIS
     Dosage: 40 MG, 1 IN 2 WK, SUBCUTANEOUS; 40 MG, 1 IN 1 WK, SUBCUTANEOUS
     Route: 058
     Dates: start: 20040721
  3. LEFLUNOMIDE [Concomitant]
  4. CELECOXIB [Concomitant]
  5. ALENDRONATE SODIUM [Concomitant]
  6. MEDROXYPROGESTERONE [Concomitant]
  7. MULTIVITAMIN [Concomitant]

REACTIONS (2)
  - DEPRESSION [None]
  - DRUG EFFECT DECREASED [None]
